FAERS Safety Report 5364894-8 (Version None)
Quarter: 2007Q2

REPORT INFORMATION
  Report Type: 
  Country: None (occurrence: None)
  Receive Date: 20070530
  Receipt Date: 20070124
  Transmission Date: 20071010
  Serious: No
  Sender: FDA-Public Use
  Company Number: 2007PV028984

PATIENT
  Age: 50 Year
  Sex: Male
  Weight: 138.8007 kg

DRUGS (9)
  1. BYETTA [Suspect]
     Indication: DIABETES MELLITUS NON-INSULIN-DEPENDENT
     Dosage: 5 MCG; BID; SC
     Route: 058
     Dates: start: 20061001, end: 20061201
  2. AMARYL [Concomitant]
  3. METFORMIN HCL [Concomitant]
  4. ZANTAC 150 [Concomitant]
  5. NORVASC [Concomitant]
  6. LISINOPRIL [Concomitant]
  7. ALBUTEROL [Concomitant]
  8. LIPITOR [Concomitant]
  9. NASONEX [Concomitant]

REACTIONS (2)
  - MUSCLE SPASMS [None]
  - UMBILICAL HAEMORRHAGE [None]
